FAERS Safety Report 7780081-8 (Version None)
Quarter: 2011Q3

REPORT INFORMATION
  Report Type: 
  Country: None (occurrence: None)
  Receive Date: 20110927
  Receipt Date: 20110921
  Transmission Date: 20111222
  Serious: Yes (Other)
  Sender: FDA-Public Use
  Company Number: DE-PFIZER INC-2011224383

PATIENT
  Age: 56 Year
  Sex: Female

DRUGS (3)
  1. VORICONAZOLE [Interacting]
  2. MEROPENEM [Interacting]
  3. SIROLIMUS [Suspect]

REACTIONS (2)
  - DRUG INTERACTION [None]
  - HEPATIC ENZYME INCREASED [None]
